FAERS Safety Report 5140600-7 (Version None)
Quarter: 2006Q4

REPORT INFORMATION
  Report Type: 
  Country: None (occurrence: None)
  Receive Date: 20061024
  Receipt Date: 20061009
  Transmission Date: 20070319
  Serious: Yes (Hospitalization)
  Sender: FDA-Public Use
  Company Number: HU200610001478

PATIENT
  Age: 66 Year
  Sex: Male

DRUGS (5)
  1. LISPRO 25LIS75NPL(LISPRO 25% LISPRO, 75% NPL) PEN,DISPOSABLE [Suspect]
     Indication: DIABETES MELLITUS
     Dosage: 28 LU EACH MORNING SUBCUTANEOUS ; 20 LU EACH EVENING SUBCUTANEOUS
     Route: 058
     Dates: start: 20060925
  2. ENALAPRIL MALEATE [Concomitant]
  3. ATORVASTATIN CALCIUM [Concomitant]
  4. ACETYLSALICYLIC ACID SRT [Concomitant]
  5. CLINDAMYCIN [Concomitant]

REACTIONS (2)
  - RASH [None]
  - URTICARIA GENERALISED [None]
